FAERS Safety Report 8974463 (Version 6)
Quarter: 2014Q3

REPORT INFORMATION
  Report Type: Spontaneous
  Country: US (occurrence: US)
  Receive Date: 20121219
  Receipt Date: 20140728
  Transmission Date: 20150326
  Serious: Yes (Hospitalization, Disabling, Other)
  Sender: FDA-Public Use
  Company Number: US-009507513-1212USA006898

PATIENT
  Sex: Female
  Weight: 77.98 kg

DRUGS (4)
  1. ALENDRONATE SODIUM. [Suspect]
     Active Substance: ALENDRONATE SODIUM
     Dosage: 70 MG, UNK
  2. FOSAMAX [Suspect]
     Active Substance: ALENDRONATE SODIUM
     Dosage: 70 MG, UNK
     Route: 048
     Dates: start: 2006, end: 201010
  3. FOSAMAX [Suspect]
     Active Substance: ALENDRONATE SODIUM
     Indication: OSTEOPOROSIS
     Dosage: 70 MG, UNK
     Route: 048
  4. FOSAMAX [Suspect]
     Active Substance: ALENDRONATE SODIUM
     Dosage: 10 MG, QD
     Route: 048

REACTIONS (38)
  - Angiopathy [Unknown]
  - Head injury [Unknown]
  - Autoimmune thyroiditis [Unknown]
  - Knee operation [Unknown]
  - Lymphadenopathy [Unknown]
  - Osteoarthritis [Unknown]
  - Prothrombin time prolonged [Unknown]
  - Haemorrhagic anaemia [Unknown]
  - Hepatitis B [Unknown]
  - Intracranial pressure increased [Unknown]
  - Gastrooesophageal reflux disease [Unknown]
  - Thrombosis [Unknown]
  - Traumatic arthritis [Recovering/Resolving]
  - Coagulopathy [Recovering/Resolving]
  - Femur fracture [Recovered/Resolved]
  - Essential hypertension [Unknown]
  - Electrocardiogram QT shortened [Unknown]
  - Stress fracture [Unknown]
  - Vascular headache [Unknown]
  - Pain [Unknown]
  - Femur fracture [Recovered/Resolved]
  - Pulmonary embolism [Unknown]
  - Osteopenia [Unknown]
  - Haematoma [Unknown]
  - International normalised ratio increased [Unknown]
  - Electrocardiogram T wave abnormal [Unknown]
  - Haemoglobin decreased [Unknown]
  - Deep vein thrombosis [Unknown]
  - Breast lump removal [Unknown]
  - Haematoma [Unknown]
  - Paranasal sinus mucosal hypertrophy [Unknown]
  - Intramedullary rod insertion [Unknown]
  - Intramedullary rod insertion [Unknown]
  - Haematocrit decreased [Unknown]
  - Hyperlipidaemia [Unknown]
  - Hypothyroidism [Unknown]
  - Depression [Unknown]
  - Benign breast neoplasm [Unknown]

NARRATIVE: CASE EVENT DATE: 199807
